FAERS Safety Report 18139869 (Version 1)
Quarter: 2020Q3

REPORT INFORMATION
  Report Type: Spontaneous
  Country: US (occurrence: US)
  Receive Date: 20200812
  Receipt Date: 20200812
  Transmission Date: 20201103
  Serious: Yes (Other)
  Sender: FDA-Public Use
  Company Number: None

PATIENT
  Age: 63 Year
  Sex: Male
  Weight: 86.14 kg

DRUGS (2)
  1. SILDENAFIL (SILDENAFIL CITRATE 100MG TAB) [Suspect]
     Active Substance: SILDENAFIL
     Indication: ERECTILE DYSFUNCTION
     Route: 048
     Dates: start: 20120521
  2. MAVYRET [Suspect]
     Active Substance: GLECAPREVIR\PIBRENTASVIR
     Indication: HEPATITIS C
     Dosage: ?          OTHER DOSE:100/40 MG;?
     Route: 048
     Dates: start: 20180726, end: 20180809

REACTIONS (7)
  - Diarrhoea [None]
  - Hyperhidrosis [None]
  - Palpitations [None]
  - Nausea [None]
  - Therapy cessation [None]
  - Vomiting [None]
  - Somnolence [None]

NARRATIVE: CASE EVENT DATE: 20180807
